FAERS Safety Report 7249761-7 (Version None)
Quarter: 2011Q1

REPORT INFORMATION
  Report Type: 
  Country: None (occurrence: None)
  Receive Date: 20110128
  Receipt Date: 20100210
  Transmission Date: 20110831
  Serious: No
  Sender: FDA-Public Use
  Company Number: A0844609A

PATIENT
  Sex: Male

DRUGS (8)
  1. SYNTHROID [Concomitant]
  2. CHANTIX [Suspect]
     Dosage: 1MG TWICE PER DAY
     Route: 048
     Dates: start: 20091202
  3. WELLBUTRIN [Suspect]
     Route: 048
  4. NEXIUM [Concomitant]
  5. LIPITOR [Concomitant]
  6. AMBIEN [Concomitant]
  7. ACETYLSALICYLIC ACID SRT [Concomitant]
  8. DETROL [Concomitant]

REACTIONS (5)
  - ORAL PAIN [None]
  - VIRAL INFECTION [None]
  - ADVERSE EVENT [None]
  - ABDOMINAL DISCOMFORT [None]
  - STOMATITIS [None]
